FAERS Safety Report 18410116 (Version 1)
Quarter: 2020Q4

REPORT INFORMATION
  Report Type: Spontaneous
  Country: CA (occurrence: CA)
  Receive Date: 20201021
  Receipt Date: 20201021
  Transmission Date: 20210114
  Serious: Yes (Death, Hospitalization, Other)
  Sender: FDA-Public Use
  Company Number: CA-SAMSUNG BIOEPIS-SB-2020-31972

PATIENT
  Age: 66 Year
  Sex: Female

DRUGS (5)
  1. INFLIXIMAB [Suspect]
     Active Substance: INFLIXIMAB
     Indication: CROHN^S DISEASE
     Route: 042
  2. PREDNISONE. [Concomitant]
     Active Substance: PREDNISONE
     Indication: PRODUCT USED FOR UNKNOWN INDICATION
     Dosage: UNKNOWN
     Route: 065
  3. DESOXIMETASONE. [Concomitant]
     Active Substance: DESOXIMETASONE
     Indication: PRODUCT USED FOR UNKNOWN INDICATION
     Dosage: UNKNOWN
     Route: 065
  4. BACTROBAN [Concomitant]
     Active Substance: MUPIROCIN\MUPIROCIN CALCIUM
     Indication: PRODUCT USED FOR UNKNOWN INDICATION
     Dosage: DOSE: UNKNOWN, ROUTE: INTRA-NASAL
     Route: 065
  5. RIFAMPICIN [Concomitant]
     Active Substance: RIFAMPIN
     Indication: LOCALISED INFECTION
     Dosage: UNKNOWN
     Route: 065

REACTIONS (5)
  - Pneumoperitoneum [Fatal]
  - Pneumonia [Fatal]
  - Death [Fatal]
  - Heart rate decreased [Fatal]
  - Large intestine perforation [Fatal]
